FAERS Safety Report 8988473 (Version 1)
Quarter: 2012Q4

REPORT INFORMATION
  Report Type: Spontaneous
  Country: US (occurrence: None)
  Receive Date: 20121224
  Receipt Date: 20121224
  Transmission Date: 20130627
  Serious: Yes (Hospitalization, Other)
  Sender: FDA-Public Use
  Company Number: None

PATIENT
  Age: 63 Year
  Sex: Male
  Weight: 77.11 kg

DRUGS (1)
  1. AMLODIPINE BESYLATE 5 MG TEVA PHARMACEUTICALS, [Suspect]
     Indication: HYPERTENSION
     Dosage: 5 mg  1/ day  po
     Route: 048
     Dates: start: 20121213, end: 20121215

REACTIONS (5)
  - Dermatitis allergic [None]
  - Ventricular extrasystoles [None]
  - Pain [None]
  - Discomfort [None]
  - Pruritus [None]
